FAERS Safety Report 14616176 (Version 1)
Quarter: 2018Q1

REPORT INFORMATION
  Report Type: Spontaneous
  Country: FR (occurrence: FR)
  Receive Date: 20180309
  Receipt Date: 20180309
  Transmission Date: 20180509
  Serious: Yes (Other)
  Sender: FDA-Public Use
  Company Number: FR-MERCK KGAA-2043399

PATIENT
  Age: 48 Year
  Sex: Female
  Weight: 78 kg

DRUGS (1)
  1. NOVOTHYROX [Suspect]
     Active Substance: LEVOTHYROXINE SODIUM
     Indication: THYROIDECTOMY
     Route: 048
     Dates: end: 20171120

REACTIONS (10)
  - Blood thyroid stimulating hormone increased [Recovered/Resolved]
  - Amnesia [Recovered/Resolved]
  - Vertigo [Recovered/Resolved]
  - Diffuse alopecia [Recovered/Resolved]
  - Myalgia [Not Recovered/Not Resolved]
  - Anxiety [Recovered/Resolved]
  - Tinnitus [Not Recovered/Not Resolved]
  - Weight decreased [Recovering/Resolving]
  - Tachycardia [Recovered/Resolved]
  - Insomnia [Recovered/Resolved]

NARRATIVE: CASE EVENT DATE: 20170401
